FAERS Safety Report 22828009 (Version 9)
Quarter: 2025Q4

REPORT INFORMATION
  Report Type: Spontaneous
  Country: US (occurrence: US)
  Receive Date: 20230816
  Receipt Date: 20251006
  Transmission Date: 20260118
  Serious: Yes (Other)
  Sender: PFIZER
  Company Number: US-PFIZER INC-PV202300045945

PATIENT
  Age: 85 Year
  Sex: Female
  Weight: 71.21 kg

DRUGS (3)
  1. IBRANCE [Suspect]
     Active Substance: PALBOCICLIB
     Indication: Breast cancer
     Dosage: 100 MG, CYCLIC (21 DAYS I TAKE IT AND THEN I GOT 7 DAYS OFF)
  2. IBRANCE [Suspect]
     Active Substance: PALBOCICLIB
     Dosage: 125 MG, ONCE DAILY FOR 21 DAYS
     Route: 048
     Dates: start: 202303
  3. IBRANCE [Suspect]
     Active Substance: PALBOCICLIB
     Dosage: 75 MG, ONCE DAILY FOR 21 DAYS FOLLOWED BY 7 DAYS OFF, REPEATING EVERY 28 DAYS/ 75 MG 1 TABLET DAILY
     Route: 048
     Dates: start: 20231009

REACTIONS (4)
  - Mental impairment [Unknown]
  - Blood test abnormal [Recovered/Resolved]
  - Anxiety [Unknown]
  - Therapy non-responder [Unknown]
